FAERS Safety Report 12608869 (Version 1)
Quarter: 2016Q3

REPORT INFORMATION
  Report Type: Spontaneous
  Country: BR (occurrence: BR)
  Receive Date: 20160730
  Receipt Date: 20160730
  Transmission Date: 20161109
  Serious: Yes (Hospitalization, Other)
  Sender: FDA-Public Use
  Company Number: BR-AMGEN-BRASP2012037519

PATIENT
  Age: 41 Year
  Sex: Male

DRUGS (3)
  1. ENBREL [Suspect]
     Active Substance: ETANERCEPT
     Indication: ANKYLOSING SPONDYLITIS
     Dosage: 50 MG, WEEKLY
     Route: 058
     Dates: start: 201111
  2. DICLOFENAC [Concomitant]
     Active Substance: DICLOFENAC
     Indication: PAIN
     Dosage: EVERY 8 HOURS
  3. DICLOFENAC [Concomitant]
     Active Substance: DICLOFENAC
     Dosage: 50 MG, EVERY 8 HOURS IF PAIN

REACTIONS (14)
  - Jaw fracture [Unknown]
  - Face injury [Unknown]
  - Visual acuity reduced [Unknown]
  - Gait disturbance [Unknown]
  - Accident [Unknown]
  - Depressed mood [Unknown]
  - Nervousness [Unknown]
  - Mood altered [Unknown]
  - Kyphosis [Unknown]
  - Fall [Unknown]
  - Pain [Unknown]
  - Back pain [Unknown]
  - Agitation [Unknown]
  - Abnormal behaviour [Unknown]
